FAERS Safety Report 7403713-2 (Version None)
Quarter: 2011Q1

REPORT INFORMATION
  Report Type: 
  Country: None (occurrence: None)
  Receive Date: 20110331
  Receipt Date: 20110311
  Transmission Date: 20110831
  Serious: Yes (Other)
  Sender: FDA-Public Use
  Company Number: ABTXA-11-0040

PATIENT
  Age: 45 Year
  Sex: Female

DRUGS (6)
  1. WELLBUTRIN [Concomitant]
  2. ZOFRAN [Concomitant]
  3. AMANTIDINE [Suspect]
     Indication: PRODUCT USED FOR UNKNOWN INDICATION
  4. OMEGA-3 FATTY ACIDS [Concomitant]
  5. ABRAXANE [Suspect]
     Indication: BREAST CANCER METASTATIC
     Dosage: (ONCE WEEKLY)
     Dates: start: 20101201, end: 20110101
  6. RADIATION [Concomitant]

REACTIONS (2)
  - VISION BLURRED [None]
  - CORNEAL OEDEMA [None]
